FAERS Safety Report 24022660 (Version 6)
Quarter: 2024Q3

REPORT INFORMATION
  Report Type: Report from Study
  Country: CN (occurrence: CN)
  Receive Date: 20240627
  Receipt Date: 20240710
  Transmission Date: 20241016
  Serious: No
  Sender: ROCHE
  Company Number: CN-ROCHE-3413803

PATIENT
  Age: 60 Year
  Sex: Male
  Weight: 75.0 kg

DRUGS (7)
  1. ALECTINIB [Suspect]
     Active Substance: ALECTINIB
     Indication: Non-small cell lung cancer
     Route: 048
     Dates: start: 20230217
  2. VALSARTANA + ANLODIPINO [Concomitant]
     Indication: Hypertension
     Route: 048
     Dates: start: 2016
  3. METFORMIN HYDROCHLORIDE [Concomitant]
     Active Substance: METFORMIN HYDROCHLORIDE
     Indication: Diabetes mellitus
     Route: 048
     Dates: start: 2016
  4. INSULIN DETEMIR [Concomitant]
     Active Substance: INSULIN DETEMIR
     Indication: Diabetes mellitus
     Route: 058
     Dates: start: 2017, end: 20230711
  5. PAECILOMYCES HEPIALI CHEN [Concomitant]
     Indication: Blood creatinine increased
     Route: 048
     Dates: start: 20230617, end: 20230706
  6. SIMO DECOCTION [Concomitant]
     Indication: Abdominal distension
     Route: 048
     Dates: start: 20230711, end: 20230715
  7. ALECTINIB [Concomitant]
     Active Substance: ALECTINIB
     Dates: start: 20230213

REACTIONS (1)
  - Abdominal distension [Recovered/Resolved]

NARRATIVE: CASE EVENT DATE: 20230711
